FAERS Safety Report 15746819 (Version 6)
Quarter: 2019Q1

REPORT INFORMATION
  Report Type: Spontaneous
  Country: PT (occurrence: PT)
  Receive Date: 20181220
  Receipt Date: 20190125
  Transmission Date: 20190417
  Serious: Yes (Hospitalization, Other)
  Sender: FDA-Public Use
  Company Number: PT-PFIZER INC-2018519752

PATIENT
  Age: 52 Year
  Sex: Male

DRUGS (1)
  1. ATORVASTATINA [Suspect]
     Active Substance: ATORVASTATIN
     Dosage: UNK
     Route: 065
     Dates: start: 2017

REACTIONS (1)
  - Immune-mediated necrotising myopathy [Recovered/Resolved]
